FAERS Safety Report 23393440 (Version 1)
Quarter: 2024Q1

REPORT INFORMATION
  Report Type: Report from Study
  Country: CO (occurrence: CO)
  Receive Date: 20240111
  Receipt Date: 20240111
  Transmission Date: 20240410
  Serious: Yes (Death)
  Sender: FDA-Public Use
  Company Number: CO-BAYER-2024A005525

PATIENT
  Age: 71 Year
  Sex: Male

DRUGS (1)
  1. ADEMPAS [Suspect]
     Active Substance: RIOCIGUAT
     Indication: Pulmonary hypertension
     Dosage: 0.5 MG, Q8HR
     Route: 048
     Dates: start: 20230616

REACTIONS (2)
  - Disease progression [Fatal]
  - Adverse event [Fatal]

NARRATIVE: CASE EVENT DATE: 20231228
